FAERS Safety Report 9120468 (Version 2)
Quarter: 2013Q1

REPORT INFORMATION
  Report Type: Spontaneous
  Country: US (occurrence: US)
  Receive Date: 20130226
  Receipt Date: 20130329
  Transmission Date: 20140127
  Serious: Yes (Other)
  Sender: FDA-Public Use
  Company Number: US-009507513-1302USA011316

PATIENT
  Age: 17 Year
  Sex: Female

DRUGS (4)
  1. MONTELUKAST SODIUM [Suspect]
     Indication: ASTHMA
     Route: 048
  2. ALBUTEROL (+) IPRATROPIUM BROMIDE [Concomitant]
     Indication: ASTHMA
     Route: 055
  3. FLUTICASONE [Concomitant]
     Indication: ASTHMA
     Route: 055
  4. CETIRIZINE HYDROCHLORIDE [Concomitant]
     Indication: ASTHMA
     Route: 048

REACTIONS (1)
  - Allergic granulomatous angiitis [Recovered/Resolved]
